FAERS Safety Report 5318753-7 (Version None)
Quarter: 2007Q2

REPORT INFORMATION
  Report Type: 
  Country: None (occurrence: None)
  Receive Date: 20070503
  Receipt Date: 20070503
  Transmission Date: 20071010
  Serious: No
  Sender: FDA-Public Use
  Company Number: None

PATIENT
  Sex: Female
  Weight: 61 kg

DRUGS (2)
  1. FERRLECIT [Suspect]
     Indication: IRON DEFICIENCY
     Dosage: 250MG IV
     Route: 042
     Dates: start: 20070320
  2. FERRLECIT [Suspect]
     Indication: RENAL DISORDER
     Dosage: 250MG IV
     Route: 042
     Dates: start: 20070320

REACTIONS (5)
  - ASTHMA [None]
  - CHEST DISCOMFORT [None]
  - COUGH [None]
  - INFUSION RELATED REACTION [None]
  - PRURITUS [None]
